FAERS Safety Report 12593783 (Version 3)
Quarter: 2018Q1

REPORT INFORMATION
  Report Type: Spontaneous
  Country: IT (occurrence: IT)
  Receive Date: 20160726
  Receipt Date: 20180119
  Transmission Date: 20180508
  Serious: Yes (Hospitalization)
  Sender: FDA-Public Use
  Company Number: IT-FRI-1000086322

PATIENT
  Age: 62 Year
  Sex: Female

DRUGS (2)
  1. CITALOPRAM HYDROBROMIDE UNK [Suspect]
     Active Substance: CITALOPRAM HYDROBROMIDE
     Indication: PRODUCT USED FOR UNKNOWN INDICATION
     Dosage: 15 ML, UNK
     Route: 048
     Dates: start: 20160625, end: 20160625
  2. ABILIFY [Suspect]
     Active Substance: ARIPIPRAZOLE
     Indication: PRODUCT USED FOR UNKNOWN INDICATION
     Dosage: 5 MG, FREQUENCY 7,FREQ_TIME 1,FREQ UNIT DAYS
     Route: 048
     Dates: start: 20160625, end: 20160625

REACTIONS (3)
  - Hypokinesia [Recovered/Resolved]
  - Intentional self-injury [Recovered/Resolved]
  - Drug abuse [Unknown]

NARRATIVE: CASE EVENT DATE: 20160625
